FAERS Safety Report 7693977-2 (Version None)
Quarter: 2011Q3

REPORT INFORMATION
  Report Type: 
  Country: None (occurrence: None)
  Receive Date: 20110819
  Receipt Date: 20110811
  Transmission Date: 20111222
  Serious: Yes (Other)
  Sender: FDA-Public Use
  Company Number: US-BAYER-201041779NA

PATIENT
  Age: 56 Year
  Sex: Male
  Weight: 91 kg

DRUGS (29)
  1. FENTANYL [Concomitant]
     Indication: PRODUCT USED FOR UNKNOWN INDICATION
  2. NITROGLYCERIN [Concomitant]
     Indication: PRODUCT USED FOR UNKNOWN INDICATION
  3. DOPAMINE HCL [Concomitant]
     Indication: PRODUCT USED FOR UNKNOWN INDICATION
  4. TRASYLOL [Suspect]
     Indication: AORTIC VALVE REPLACEMENT
     Dosage: 1 ML INITIAL (TEST) DOSE
     Route: 042
     Dates: start: 20060403, end: 20060403
  5. DIOVAN [Concomitant]
     Indication: PRODUCT USED FOR UNKNOWN INDICATION
     Dosage: DAILY
  6. MAGNESIUM SULFATE [Concomitant]
     Indication: PRODUCT USED FOR UNKNOWN INDICATION
  7. TRASYLOL [Suspect]
  8. SELENIUM [Concomitant]
     Indication: PRODUCT USED FOR UNKNOWN INDICATION
  9. ZEMURON [Concomitant]
     Indication: PRODUCT USED FOR UNKNOWN INDICATION
  10. ESMOLOL [Concomitant]
     Indication: PRODUCT USED FOR UNKNOWN INDICATION
  11. ZINACEF [Concomitant]
     Indication: PRODUCT USED FOR UNKNOWN INDICATION
  12. EPINEPHRINE [Concomitant]
     Indication: PRODUCT USED FOR UNKNOWN INDICATION
  13. TRASYLOL [Suspect]
     Indication: CORONARY ARTERY BYPASS
     Dosage: 200 ML PUMP PRIME
     Route: 042
     Dates: start: 20060403, end: 20060403
  14. RESTORIL [Concomitant]
     Indication: PRODUCT USED FOR UNKNOWN INDICATION
     Dosage: DAILY
  15. NOVOLOG [Concomitant]
     Indication: PRODUCT USED FOR UNKNOWN INDICATION
     Dosage: WHEN NEEDED
  16. TOPROL-XL [Concomitant]
     Indication: PRODUCT USED FOR UNKNOWN INDICATION
     Dosage: DAILY
  17. INSULIN [Concomitant]
     Indication: PRODUCT USED FOR UNKNOWN INDICATION
  18. TRASYLOL [Suspect]
     Indication: COX-MAZE PROCEDURE
     Dosage: 50 ML/HR
     Route: 042
     Dates: start: 20060403, end: 20060403
  19. COUMADIN [Concomitant]
     Indication: PRODUCT USED FOR UNKNOWN INDICATION
     Dosage: DAILY
  20. SPIRONOLACTONE [Concomitant]
     Indication: PRODUCT USED FOR UNKNOWN INDICATION
     Dosage: DAILY
  21. HEPARIN [Concomitant]
     Indication: PRODUCT USED FOR UNKNOWN INDICATION
  22. DIGOXIN [Concomitant]
     Indication: PRODUCT USED FOR UNKNOWN INDICATION
     Dosage: DAILY
  23. VYTORIN [Concomitant]
     Indication: PRODUCT USED FOR UNKNOWN INDICATION
     Dosage: DAILY
  24. PROTAMINE [Concomitant]
     Indication: PRODUCT USED FOR UNKNOWN INDICATION
  25. SODIUM CHLORIDE [Concomitant]
     Indication: PRODUCT USED FOR UNKNOWN INDICATION
  26. OPTIRAY 300 [Concomitant]
     Indication: CATHETERISATION CARDIAC
     Dosage: 175 CC
     Dates: start: 20060309
  27. LANTUS [Concomitant]
     Indication: PRODUCT USED FOR UNKNOWN INDICATION
     Dosage: WHEN NEEDED
  28. VERSED [Concomitant]
     Indication: PRODUCT USED FOR UNKNOWN INDICATION
  29. FRESH FROZEN PLASMA [Concomitant]
     Dosage: 2 U, UNK
     Route: 042
     Dates: start: 20060403

REACTIONS (11)
  - RENAL INJURY [None]
  - RENAL IMPAIRMENT [None]
  - INJURY [None]
  - RENAL FAILURE [None]
  - PAIN [None]
  - EMOTIONAL DISTRESS [None]
  - UNEVALUABLE EVENT [None]
  - STRESS [None]
  - ANXIETY [None]
  - CARDIAC DISORDER [None]
  - FEAR [None]
